FAERS Safety Report 24175593 (Version 5)
Quarter: 2025Q2

REPORT INFORMATION
  Report Type: Report from Study
  Country: US (occurrence: US)
  Receive Date: 20240805
  Receipt Date: 20250408
  Transmission Date: 20250716
  Serious: Yes (Other)
  Sender: OTSUKA
  Company Number: US-OTSUKA-2024_017039

PATIENT
  Sex: Female

DRUGS (5)
  1. TOLVAPTAN [Suspect]
     Active Substance: TOLVAPTAN
     Indication: Congenital cystic kidney disease
     Dosage: 45 MG, QD (IN MORNING)
     Route: 065
     Dates: start: 20200929
  2. TOLVAPTAN [Suspect]
     Active Substance: TOLVAPTAN
     Dosage: 15 MG, QD (IN EVENING)
     Route: 065
     Dates: start: 20200929
  3. TOLVAPTAN [Suspect]
     Active Substance: TOLVAPTAN
     Route: 065
     Dates: start: 20250203
  4. TOLVAPTAN [Suspect]
     Active Substance: TOLVAPTAN
     Route: 065
  5. MAGNESIUM [Suspect]
     Active Substance: MAGNESIUM
     Indication: Product used for unknown indication
     Route: 065

REACTIONS (13)
  - Benign breast neoplasm [Unknown]
  - Colonoscopy [Recovered/Resolved]
  - Post procedural diarrhoea [Recovered/Resolved]
  - Carbon dioxide decreased [Recovering/Resolving]
  - Aspartate aminotransferase decreased [Recovering/Resolving]
  - Blood chloride increased [Recovered/Resolved]
  - Alanine aminotransferase decreased [Recovered/Resolved]
  - Influenza [Recovered/Resolved]
  - Blood creatinine increased [Recovered/Resolved]
  - Glomerular filtration rate decreased [Recovered/Resolved]
  - Blood glucose increased [Unknown]
  - Diarrhoea [Unknown]
  - Product dose omission issue [Unknown]

NARRATIVE: CASE EVENT DATE: 20240615
